FAERS Safety Report 6034633-6 (Version None)
Quarter: 2009Q1

REPORT INFORMATION
  Report Type: 
  Country: None (occurrence: None)
  Receive Date: 20090109
  Receipt Date: 20090109
  Transmission Date: 20090719
  Serious: No
  Sender: FDA-Public Use
  Company Number: None

PATIENT
  Sex: Male

DRUGS (7)
  1. ZOMETA [Suspect]
     Indication: MULTIPLE MYELOMA
     Dosage: 4 MG EVERY FOUR MONTH IV
     Route: 042
     Dates: start: 20040101, end: 20071201
  2. CARTIA XT [Concomitant]
  3. DIGOXIN [Concomitant]
  4. METOPROLOL TARTRATE [Concomitant]
  5. ASPIRIN [Concomitant]
  6. CEPHADROXIL [Concomitant]
  7. DEPO-TESTOSTERONE [Concomitant]

REACTIONS (2)
  - BONE DISORDER [None]
  - PERIODONTAL DISEASE [None]
